FAERS Safety Report 7751697-X (Version None)
Quarter: 2011Q3

REPORT INFORMATION
  Report Type: 
  Country: None (occurrence: None)
  Receive Date: 20110915
  Receipt Date: 20110913
  Transmission Date: 20111222
  Serious: Yes (Hospitalization)
  Sender: FDA-Public Use
  Company Number: GB-BRISTOL-MYERS SQUIBB COMPANY-16055378

PATIENT
  Age: 67 Year
  Sex: Female

DRUGS (11)
  1. CARBOPLATIN [Suspect]
     Route: 042
  2. SENNA [Concomitant]
     Route: 048
  3. METOCLOPRAMIDE [Concomitant]
     Route: 048
  4. ASPIRIN [Concomitant]
     Route: 048
  5. MORPHINE SULFATE [Concomitant]
     Route: 048
  6. ORAMORPH SR [Concomitant]
  7. DALTEPARIN SODIUM [Concomitant]
     Indication: LUNG NEOPLASM MALIGNANT
     Dates: start: 20110616
  8. GLICLAZIDE [Concomitant]
     Route: 048
  9. RAMIPRIL [Concomitant]
     Route: 048
  10. LACTULOSE [Concomitant]
     Route: 048
  11. ETOPOSIDE [Suspect]
     Route: 042

REACTIONS (1)
  - MUSCULAR WEAKNESS [None]
